FAERS Safety Report 18733900 (Version 1)
Quarter: 2021Q1

REPORT INFORMATION
  Report Type: Spontaneous
  Country: US (occurrence: US)
  Receive Date: 20210113
  Receipt Date: 20210113
  Transmission Date: 20210419
  Serious: Yes (Hospitalization)
  Sender: FDA-Public Use
  Company Number: US-AUROBINDO-AUR-APL-2021-001267

PATIENT
  Age: 48 Year
  Sex: Female

DRUGS (1)
  1. SEVELAMER CARBONATE. [Suspect]
     Active Substance: SEVELAMER CARBONATE
     Indication: PRODUCT USED FOR UNKNOWN INDICATION
     Dosage: 3200 MILLIGRAM, 3 TIMES A DAY
     Route: 065

REACTIONS (1)
  - Gastric disorder [Unknown]
